FAERS Safety Report 9161172 (Version 3)
Quarter: 2013Q2

REPORT INFORMATION
  Report Type: Spontaneous
  Country: JP (occurrence: JP)
  Receive Date: 20130313
  Receipt Date: 20130531
  Transmission Date: 20140414
  Serious: Yes (Hospitalization, Other)
  Sender: FDA-Public Use
  Company Number: JP-009507513-1303JPN004126

PATIENT
  Age: 78 Year
  Sex: Male

DRUGS (3)
  1. JANUVIA TABLETS 50MG [Suspect]
     Indication: DIABETES MELLITUS
     Dosage: 100 MG, QD
     Route: 048
     Dates: start: 20130305, end: 20130305
  2. JANUVIA TABLETS 50MG [Suspect]
     Dosage: 50 MG, QD
     Route: 048
     Dates: start: 20130228, end: 20130304
  3. MEMARY [Suspect]
     Indication: DEMENTIA
     Dosage: 20 MG, QD
     Route: 048
     Dates: end: 20130306

REACTIONS (1)
  - Epilepsy [Recovered/Resolved]
